FAERS Safety Report 5930542-9 (Version None)
Quarter: 2008Q4

REPORT INFORMATION
  Report Type: 
  Country: None (occurrence: None)
  Receive Date: 20081026
  Receipt Date: 20081024
  Transmission Date: 20090506
  Serious: Yes (Hospitalization)
  Sender: FDA-Public Use
  Company Number: PHHO2002ES00853

PATIENT
  Sex: Male
  Weight: 72 kg

DRUGS (4)
  1. NEORAL [Suspect]
     Indication: RENAL TRANSPLANT
  2. LESCOL LES+ [Suspect]
     Indication: RENAL TRANSPLANT
     Route: 048
     Dates: start: 20020114, end: 20020118
  3. CELLCEPT [Concomitant]
     Indication: RENAL TRANSPLANT
  4. DACORTIN [Concomitant]
     Indication: RENAL TRANSPLANT

REACTIONS (5)
  - DISSEMINATED INTRAVASCULAR COAGULATION [None]
  - GASTROINTESTINAL HYPOMOTILITY [None]
  - KIDNEY TRANSPLANT REJECTION [None]
  - REMOVAL OF RENAL TRANSPLANT [None]
  - RENAL INFARCT [None]
